FAERS Safety Report 5886251-8 (Version None)
Quarter: 2008Q3

REPORT INFORMATION
  Report Type: 
  Country: None (occurrence: None)
  Receive Date: 20080912
  Receipt Date: 20080829
  Transmission Date: 20090109
  Serious: Yes (Life-Threatening)
  Sender: FDA-Public Use
  Company Number: 004259

PATIENT
  Age: 3 Year
  Sex: Male

DRUGS (7)
  1. BUSULFEX [Suspect]
     Indication: STEM CELL TRANSPLANT
     Dosage: 10.4 ML, INTRAVENOUS
     Route: 042
     Dates: start: 20070911, end: 20070912
  2. FLUDARABINE PHOSPHATE [Concomitant]
  3. ATG        (ANTILYMPHOCYTE IMMUNOGLOBULIN    (HORSE)) [Concomitant]
  4. VALPROATE SODIUM [Concomitant]
  5. LENOGRASTIME (LENOGRASTIM) [Concomitant]
  6. METHOTREXATE [Concomitant]
  7. TACROLIMUS [Concomitant]

REACTIONS (6)
  - ACUTE GRAFT VERSUS HOST DISEASE [None]
  - ANOREXIA [None]
  - DIARRHOEA [None]
  - MALAISE [None]
  - NEUROBLASTOMA RECURRENT [None]
  - STOMATITIS [None]
